FAERS Safety Report 4735581-1 (Version None)
Quarter: 2005Q3

REPORT INFORMATION
  Report Type: 
  Country: None (occurrence: None)
  Receive Date: 20050805
  Receipt Date: 20050408
  Transmission Date: 20060218
  Serious: Yes (Hospitalization)
  Sender: FDA-Public Use
  Company Number: US-MERCK-0504USA01260

PATIENT
  Age: 63 Year
  Sex: Female
  Weight: 73 kg

DRUGS (24)
  1. VIOXX [Suspect]
     Indication: BACK PAIN
     Route: 048
     Dates: start: 20010101, end: 20030101
  2. XANAX [Concomitant]
     Route: 065
     Dates: start: 20010101
  3. CLIMARA [Concomitant]
     Route: 065
  4. VOLTAREN [Concomitant]
     Route: 065
     Dates: start: 20020101
  5. ROBAXIN [Concomitant]
     Route: 065
     Dates: start: 20020101
  6. VASOTEC RPD [Concomitant]
     Route: 065
  7. ESTRADERM [Concomitant]
     Route: 065
  8. LOPRESSOR [Concomitant]
     Route: 065
     Dates: start: 20000101
  9. IMDUR [Concomitant]
     Route: 065
     Dates: start: 20000101
  10. ZESTRIL [Concomitant]
     Route: 065
  11. MAXZIDE [Concomitant]
     Route: 065
     Dates: start: 20000101
  12. ELAVIL [Concomitant]
     Route: 065
  13. MOTRIN [Concomitant]
     Route: 065
     Dates: start: 19800101
  14. PENICILLIN (UNSPECIFIED) [Concomitant]
     Route: 065
  15. ESTINYL [Concomitant]
     Route: 065
  16. LOTENSIN [Concomitant]
     Route: 065
     Dates: start: 20000101
  17. ADALAT [Concomitant]
     Route: 065
     Dates: start: 19980101
  18. VICODIN [Concomitant]
     Route: 065
     Dates: start: 20010501
  19. DARVOCET-N 100 [Concomitant]
     Route: 065
     Dates: start: 20020201
  20. ANAPROX [Concomitant]
     Route: 065
     Dates: start: 20020301
  21. PLAVIX [Concomitant]
     Route: 065
     Dates: start: 20010101, end: 20050101
  22. ADVIL [Concomitant]
     Route: 065
     Dates: start: 19800101
  23. ALEVE [Concomitant]
     Route: 065
     Dates: start: 19800101
  24. TYLENOL (CAPLET) [Concomitant]
     Route: 065
     Dates: start: 19800101

REACTIONS (8)
  - ABDOMINAL PAIN [None]
  - ANGINA UNSTABLE [None]
  - DYSPNOEA [None]
  - HOT FLUSH [None]
  - HYPERTENSION [None]
  - MYOCARDIAL INFARCTION [None]
  - NAUSEA [None]
  - PAIN [None]
